FAERS Safety Report 10383370 (Version 1)
Quarter: 2014Q3

REPORT INFORMATION
  Report Type: Report from Study
  Country: US (occurrence: US)
  Receive Date: 20140814
  Receipt Date: 20140814
  Transmission Date: 20150326
  Serious: Yes (Other)
  Sender: FDA-Public Use
  Company Number: US-ROCHE-1445892

PATIENT
  Age: 75 Year
  Sex: Male

DRUGS (37)
  1. HEPARIN [Concomitant]
     Active Substance: HEPARIN SODIUM
  2. FENTANYL. [Concomitant]
     Active Substance: FENTANYL
  3. LASIX [Concomitant]
     Active Substance: FUROSEMIDE
  4. MANNITOL. [Concomitant]
     Active Substance: MANNITOL
  5. BACTRIM [Concomitant]
     Active Substance: SULFAMETHOXAZOLE\TRIMETHOPRIM
  6. VALGANCICLOVIR [Concomitant]
     Active Substance: VALGANCICLOVIR
  7. TACROLIMUS. [Concomitant]
     Active Substance: TACROLIMUS
  8. PHENYLEPHRINE [Concomitant]
     Active Substance: PHENYLEPHRINE\PHENYLEPHRINE HYDROCHLORIDE
  9. POLYMYXIN [Concomitant]
     Active Substance: POLYMYXIN
  10. LIDOCAINE. [Concomitant]
     Active Substance: LIDOCAINE
  11. CALCIUM CARBONATE. [Concomitant]
     Active Substance: CALCIUM CARBONATE
  12. MAGNESIUM SULFATE [Concomitant]
     Active Substance: MAGNESIUM SULFATE
  13. PERCOCET [Concomitant]
     Active Substance: ACETAMINOPHEN\OXYCODONE HYDROCHLORIDE
  14. SAW PALMETTO [Concomitant]
     Active Substance: SAW PALMETTO
  15. ALLOPURINOL. [Concomitant]
     Active Substance: ALLOPURINOL
  16. HYDROMORPHONE [Concomitant]
     Active Substance: HYDROMORPHONE
  17. INSULIN [Concomitant]
     Active Substance: INSULIN NOS
  18. FAMOTIDINE. [Concomitant]
     Active Substance: FAMOTIDINE
  19. VERSED [Concomitant]
     Active Substance: MIDAZOLAM HYDROCHLORIDE
  20. NEOMYCIN [Concomitant]
     Active Substance: NEOMYCIN
  21. SEVOFLURANE. [Concomitant]
     Active Substance: SEVOFLURANE
  22. PROPOFOL. [Concomitant]
     Active Substance: PROPOFOL
  23. DOCUSATE [Concomitant]
     Active Substance: DOCUSATE
  24. ARANESP [Concomitant]
     Active Substance: DARBEPOETIN ALFA
  25. BLINDED QPI-1002 (SIRNA P53 INHIBITOR GENE THERAPY) [Suspect]
     Active Substance: INVESTIGATIONAL PRODUCT
     Indication: RENAL FAILURE CHRONIC
     Route: 042
     Dates: start: 20120815
  26. PLAVIX [Concomitant]
     Active Substance: CLOPIDOGREL BISULFATE
  27. EPHEDRINE [Concomitant]
     Active Substance: EPHEDRINE
  28. METHYLENE BLUE. [Concomitant]
     Active Substance: METHYLENE BLUE
  29. ROCURONIUM [Concomitant]
     Active Substance: ROCURONIUM BROMIDE
  30. ERGOCALCIFEROL. [Concomitant]
     Active Substance: ERGOCALCIFEROL
  31. VANCOMYCIN [Concomitant]
     Active Substance: VANCOMYCIN
  32. GLYCOPYRROLATE. [Concomitant]
     Active Substance: GLYCOPYRROLATE
  33. MYCOPHENOLATE MOFETIL. [Suspect]
     Active Substance: MYCOPHENOLATE MOFETIL
     Indication: RENAL FAILURE CHRONIC
     Route: 065
  34. ONDANSETRON [Concomitant]
     Active Substance: ONDANSETRON
  35. MORPHINE [Concomitant]
     Active Substance: MORPHINE
  36. SODIUM BICARBONATE. [Concomitant]
     Active Substance: SODIUM BICARBONATE
  37. BASILIXIMAB [Concomitant]
     Active Substance: BASILIXIMAB

REACTIONS (16)
  - Kidney fibrosis [None]
  - Renal failure acute [None]
  - Hyperkalaemia [None]
  - Anaemia [None]
  - Diarrhoea [None]
  - Insomnia [None]
  - Viraemia [Recovered/Resolved with Sequelae]
  - Renal tubular atrophy [None]
  - Focal segmental glomerulosclerosis [None]
  - BK virus infection [None]
  - Incorrect dose administered [None]
  - Transplant rejection [Recovered/Resolved]
  - Kidney transplant rejection [None]
  - Renal tubular necrosis [None]
  - Polyomavirus-associated nephropathy [None]
  - Nightmare [None]

NARRATIVE: CASE EVENT DATE: 20120822
